FAERS Safety Report 12212678 (Version 2)
Quarter: 2016Q2

REPORT INFORMATION
  Report Type: Spontaneous
  Country: CA (occurrence: CA)
  Receive Date: 20160328
  Receipt Date: 20160421
  Transmission Date: 20160815
  Serious: Yes (Other)
  Sender: FDA-Public Use
  Company Number: CA-AMGEN-CANSP2016036511

PATIENT
  Age: 76 Year
  Sex: Male

DRUGS (20)
  1. SULFASALAZINE. [Suspect]
     Active Substance: SULFASALAZINE
     Indication: PRODUCT USED FOR UNKNOWN INDICATION
     Dosage: 500 MG, BID
     Route: 065
  2. PLAQUENIL [Concomitant]
     Active Substance: HYDROXYCHLOROQUINE SULFATE
     Dosage: 1000 MG, BID
     Dates: start: 201111, end: 201204
  3. VITAMIN B12 [Concomitant]
     Active Substance: CYANOCOBALAMIN
     Dosage: 1200 MCG, 1 TABLET 1 TIME PER DAY
     Dates: end: 20160321
  4. ENDOCET [Concomitant]
     Active Substance: ACETAMINOPHEN\OXYCODONE HYDROCHLORIDE
     Dosage: 5+325 MG, 1 TABLET 2 TIMES PER DAY PRN
     Dates: end: 20160321
  5. ASA [Concomitant]
     Active Substance: ASPIRIN
     Dosage: 325 MG OCC, UNK
  6. OXYCOCET [Concomitant]
     Active Substance: ACETAMINOPHEN\OXYCODONE HYDROCHLORIDE
     Dosage: 2 TABS, 4-5X/WEEK
  7. FOLIC ACID. [Concomitant]
     Active Substance: FOLIC ACID
     Dosage: 5 MG, 3 TIMES/WK
  8. BISOPROLOL [Concomitant]
     Active Substance: BISOPROLOL
     Dosage: 5 MG, QD
  9. PREDNISONE. [Concomitant]
     Active Substance: PREDNISONE
     Dosage: 1 MG, QD
  10. OMEGA 3 [Concomitant]
     Active Substance: OMEGA-3 FATTY ACIDS
     Dosage: 12000 MG, QD
  11. ENBREL [Suspect]
     Active Substance: ETANERCEPT
     Indication: PRODUCT USED FOR UNKNOWN INDICATION
     Dosage: UNK
     Route: 065
  12. PENNSAID [Concomitant]
     Active Substance: DICLOFENAC SODIUM
     Dosage: UNK
  13. NAPRELAN [Concomitant]
     Active Substance: NAPROXEN SODIUM
     Dosage: 1000 MG, 1-2X/MONTH
  14. METOPROLOL. [Concomitant]
     Active Substance: METOPROLOL
     Dosage: 75 MG, BID
  15. LAX-A-DAY [Concomitant]
     Dosage: UNK, OCC
  16. ARAVA [Suspect]
     Active Substance: LEFLUNOMIDE
     Indication: PRODUCT USED FOR UNKNOWN INDICATION
     Dosage: 20 MG/D, M-W-F
     Route: 065
  17. ARAVA [Suspect]
     Active Substance: LEFLUNOMIDE
     Dosage: 10 MG/D, 4X/WEEK
     Route: 065
  18. XELJANZ [Concomitant]
     Active Substance: TOFACITINIB CITRATE
     Indication: RHEUMATOID ARTHRITIS
     Dosage: UNK
     Route: 048
     Dates: start: 20160325
  19. INDOMETHACIN. [Concomitant]
     Active Substance: INDOMETHACIN
     Dosage: UNK
  20. METHOTREXATE [Suspect]
     Active Substance: METHOTREXATE
     Indication: PRODUCT USED FOR UNKNOWN INDICATION
     Dosage: 25 MG, QWK
     Route: 058

REACTIONS (10)
  - Vascular graft [Unknown]
  - Drug effect decreased [Unknown]
  - Peripheral swelling [Unknown]
  - Lung disorder [Unknown]
  - Joint swelling [Unknown]
  - Arthralgia [Unknown]
  - Cardiac failure congestive [Unknown]
  - Musculoskeletal pain [Unknown]
  - Abdominal discomfort [Unknown]
  - Pulmonary toxicity [Unknown]

NARRATIVE: CASE EVENT DATE: 20150729
